FAERS Safety Report 13979915 (Version 3)
Quarter: 2018Q2

REPORT INFORMATION
  Report Type: Spontaneous
  Country: US (occurrence: US)
  Receive Date: 20170914
  Receipt Date: 20180625
  Transmission Date: 20180711
  Serious: Yes (Other)
  Sender: FDA-Public Use
  Company Number: US-ASTELLAS-2017US026471

PATIENT
  Sex: Male

DRUGS (2)
  1. TRAMADOL. [Concomitant]
     Active Substance: TRAMADOL
     Indication: PRODUCT USED FOR UNKNOWN INDICATION
     Route: 048
  2. XTANDI [Suspect]
     Active Substance: ENZALUTAMIDE
     Indication: PROSTATE CANCER
     Route: 048
     Dates: start: 20170502

REACTIONS (13)
  - Kidney congestion [Unknown]
  - Arthralgia [Not Recovered/Not Resolved]
  - Nephrolithiasis [Unknown]
  - Abdominal pain [Unknown]
  - Prostatic specific antigen increased [Unknown]
  - Pain [Unknown]
  - Pain in extremity [Unknown]
  - Back pain [Unknown]
  - Diarrhoea [Unknown]
  - Fatigue [Not Recovered/Not Resolved]
  - Gait inability [Unknown]
  - Decreased appetite [Unknown]
  - Abdominal discomfort [Unknown]
